FAERS Safety Report 9016416 (Version 2)
Quarter: 2013Q1

REPORT INFORMATION
  Report Type: Spontaneous
  Country: US (occurrence: US)
  Receive Date: 20130116
  Receipt Date: 20130206
  Transmission Date: 20140127
  Serious: Yes (Hospitalization)
  Sender: FDA-Public Use
  Company Number: US-GLAXOSMITHKLINE-A1008024A

PATIENT
  Age: 71 Year
  Sex: Female

DRUGS (9)
  1. RYTHMOL [Suspect]
     Indication: ATRIAL FIBRILLATION
     Dosage: 225MG THREE TIMES PER DAY
     Route: 048
     Dates: start: 2003
  2. SYNTHROID [Concomitant]
  3. XANAX [Concomitant]
  4. AMLODIPINE [Concomitant]
  5. OCUVITE [Concomitant]
  6. VITAMIN D [Concomitant]
  7. FLAX SEED OIL [Concomitant]
  8. MAGNESIUM [Concomitant]
  9. DIGOXIN [Concomitant]

REACTIONS (6)
  - Atrial fibrillation [Recovered/Resolved]
  - Cardioversion [Recovered/Resolved]
  - Anxiety [Recovered/Resolved]
  - Fatigue [Recovered/Resolved]
  - International normalised ratio decreased [Recovered/Resolved]
  - Expired drug administered [Unknown]
